FAERS Safety Report 6565349-5 (Version None)
Quarter: 2010Q1

REPORT INFORMATION
  Report Type: 
  Country: None (occurrence: None)
  Receive Date: 20100201
  Receipt Date: 20100121
  Transmission Date: 20100710
  Serious: Yes (Other)
  Sender: FDA-Public Use
  Company Number: KR-JNJFOC-20100101672

PATIENT
  Sex: Male
  Weight: 54 kg

DRUGS (9)
  1. GOLIMUMAB [Suspect]
     Indication: RHEUMATOID ARTHRITIS
     Route: 058
  2. GOLIMUMAB [Suspect]
     Route: 058
  3. PLACEBO [Suspect]
     Indication: RHEUMATOID ARTHRITIS
     Route: 058
  4. METHOTREXATE [Suspect]
     Indication: RHEUMATOID ARTHRITIS
     Route: 048
  5. METHOTREXATE [Suspect]
     Route: 048
  6. FOLIC ACID [Concomitant]
     Route: 048
  7. METHOTREXATE [Concomitant]
     Route: 048
  8. MELOXICAM [Concomitant]
     Route: 048
  9. CIMETIDINE [Concomitant]
     Route: 048

REACTIONS (1)
  - PULMONARY TUBERCULOSIS [None]
